FAERS Safety Report 6155570-2 (Version None)
Quarter: 2009Q2

REPORT INFORMATION
  Report Type: 
  Country: None (occurrence: None)
  Receive Date: 20090413
  Receipt Date: 20090403
  Transmission Date: 20091009
  Serious: Yes (Death)
  Sender: FDA-Public Use
  Company Number: GXBR2009US00928

PATIENT
  Age: 52 Year
  Sex: Male
  Weight: 137.4 kg

DRUGS (14)
  1. NABUMETONE [Suspect]
     Dosage: 750 MG, BID, ORAL
     Route: 048
  2. LISINOPRIL AND HYDROCHLOROTHIAZIDE [Suspect]
     Indication: HYPERTENSION
     Dosage: 20/12.5MG QD, ORAL
     Route: 048
  3. ATENOLOL [Suspect]
     Indication: HYPERTENSION
     Dosage: 25 MG, QD, ORAL
     Route: 048
  4. CARISOPRODOL [Suspect]
     Dosage: 350 MG, TID, ORAL
     Route: 048
  5. HYDROXYZINE HCL [Suspect]
     Dosage: 50 MG, QD, ORAL
     Route: 048
  6. AMITRIPTYLINE HCL TAB [Suspect]
     Dosage: 25 MG, QHS, ORAL
     Route: 048
  7. FORADIL [Suspect]
     Dosage: BID, INHALATION
     Route: 055
  8. FLUOXETINE [Suspect]
     Indication: DEPRESSION
     Dosage: 40 MG
  9. OXYMORPHONE HCL [Suspect]
     Dosage: 30 MG, Q12H
  10. LUNESTA [Suspect]
     Indication: INSOMNIA
     Dosage: 3 MG, QHS, ORAL
     Route: 048
  11. METHOTREXATE [Suspect]
     Dosage: 7.5 MG, QW
  12. SEROQUEL [Suspect]
     Dosage: 200 MG, QD4SDO, ORAL
     Route: 048
  13. REQUIP [Suspect]
     Dosage: 0.5 MG, QHS, ORAL
     Route: 048
  14. PEGINTERFERON ALFA-2A(PEGINTERFERON ALFA-2A) [Suspect]
     Dosage: 180 UG, QW

REACTIONS (2)
  - PAIN [None]
  - UNRESPONSIVE TO STIMULI [None]
